FAERS Safety Report 24970256 (Version 1)
Quarter: 2025Q1

REPORT INFORMATION
  Report Type: Spontaneous
  Country: US (occurrence: None)
  Receive Date: 20250213
  Receipt Date: 20250213
  Transmission Date: 20250408
  Serious: No
  Sender: FDA-CTU
  Company Number: None

PATIENT

DRUGS (1)
  1. TIRZEPATIDE [Suspect]
     Active Substance: TIRZEPATIDE
     Indication: Weight control
     Dates: start: 20250113, end: 20250213

REACTIONS (4)
  - Drug ineffective [None]
  - Product storage error [None]
  - Manufacturing product shipping issue [None]
  - Product quality issue [None]

NARRATIVE: CASE EVENT DATE: 20250207
